FAERS Safety Report 22532544 (Version 2)
Quarter: 2023Q2

REPORT INFORMATION
  Report Type: Spontaneous
  Country: US (occurrence: US)
  Receive Date: 20230607
  Receipt Date: 20230619
  Transmission Date: 20230721
  Serious: Yes (Other)
  Sender: FDA-Public Use
  Company Number: US-TEVA-2023-US-2893249

PATIENT
  Age: 59 Year
  Sex: Female

DRUGS (2)
  1. PACLITAXEL [Interacting]
     Active Substance: PACLITAXEL
     Indication: Oesophageal adenocarcinoma
     Route: 065
  2. RAMUCIRUMAB [Interacting]
     Active Substance: RAMUCIRUMAB
     Indication: Oesophageal adenocarcinoma
     Route: 065

REACTIONS (2)
  - Pyogenic granuloma [Unknown]
  - Drug interaction [Unknown]
